FAERS Safety Report 10342624 (Version 1)
Quarter: 2014Q3

REPORT INFORMATION
  Report Type: Spontaneous
  Country: IT (occurrence: IT)
  Receive Date: 20140725
  Receipt Date: 20140725
  Transmission Date: 20150326
  Serious: Yes (Other)
  Sender: FDA-Public Use
  Company Number: IT-WATSON-2014-15918

PATIENT
  Age: 60 Year
  Sex: Female

DRUGS (1)
  1. METFORMIN (UNKNOWN) [Suspect]
     Active Substance: METFORMIN HYDROCHLORIDE
     Indication: PRODUCT USED FOR UNKNOWN INDICATION
     Dosage: 500 MG, DAILY
     Route: 048
     Dates: start: 20140509, end: 20140512

REACTIONS (2)
  - Dysentery [Recovered/Resolved]
  - Aerophagia [Recovered/Resolved]

NARRATIVE: CASE EVENT DATE: 20140510
